FAERS Safety Report 8789867 (Version 2)
Quarter: 2012Q4

REPORT INFORMATION
  Report Type: 
  Country: DE (occurrence: DE)
  Receive Date: 20120917
  Receipt Date: 20121210
  Transmission Date: 20130627
  Serious: Yes (Other)
  Sender: FDA-Public Use
  Company Number: DE-NOVOPROD-359544

PATIENT
  Age: 28 Year
  Sex: Male
  Weight: 70 kg

DRUGS (1)
  1. ACTRAPID INNOLET [Suspect]
     Indication: TYPE 2 DIABETES MELLITUS
     Dosage: Unknown
     Route: 065
     Dates: start: 20120430

REACTIONS (4)
  - Dysthymic disorder [Recovered/Resolved]
  - Hypertensive crisis [Recovered/Resolved]
  - Paraesthesia [Recovered/Resolved]
  - Anaphylactic shock [Recovered/Resolved]
